FAERS Safety Report 7723677-1 (Version None)
Quarter: 2011Q3

REPORT INFORMATION
  Report Type: 
  Country: None (occurrence: None)
  Receive Date: 20110901
  Receipt Date: 20110819
  Transmission Date: 20111222
  Serious: Yes (Life-Threatening, Hospitalization, Other)
  Sender: FDA-Public Use
  Company Number: GB-ELI_LILLY_AND_COMPANY-GB201108006437

PATIENT
  Age: 28 Year
  Sex: Female

DRUGS (2)
  1. NORMODYNE [Concomitant]
     Indication: GESTATIONAL HYPERTENSION
  2. OLANZAPINE [Suspect]
     Indication: BRIEF PSYCHOTIC DISORDER, WITH POSTPARTUM ONSET
     Dosage: UNK UNK, UNKNOWN
     Route: 048
     Dates: start: 20101103, end: 20101108

REACTIONS (3)
  - HEMIPARESIS [None]
  - ANTIPHOSPHOLIPID SYNDROME [None]
  - ISCHAEMIC STROKE [None]
